FAERS Safety Report 9621610 (Version 1)
Quarter: 2013Q4

REPORT INFORMATION
  Report Type: Report from Study
  Country: US (occurrence: US)
  Receive Date: 20131015
  Receipt Date: 20131015
  Transmission Date: 20140711
  Serious: Yes (Other)
  Sender: FDA-Public Use
  Company Number: US-CELGENEUS-163-21880-13102275

PATIENT
  Age: 53 Year
  Sex: Male
  Weight: 182 kg

DRUGS (6)
  1. REVLIMID [Suspect]
     Indication: PLASMA CELL MYELOMA
     Route: 048
  2. REVLIMID [Suspect]
     Route: 048
  3. MELPHALAN [Suspect]
     Indication: PLASMA CELL MYELOMA
     Route: 065
  4. MELPHALAN [Suspect]
     Route: 065
  5. PREDNISONE [Suspect]
     Indication: PLASMA CELL MYELOMA
     Route: 065
  6. PREDNISONE [Suspect]
     Route: 065

REACTIONS (1)
  - Toxicity to various agents [Unknown]
